FAERS Safety Report 6130298-3 (Version None)
Quarter: 2009Q1

REPORT INFORMATION
  Report Type: 
  Country: None (occurrence: None)
  Receive Date: 20090324
  Receipt Date: 20090312
  Transmission Date: 20090719
  Serious: Yes (Other)
  Sender: FDA-Public Use
  Company Number: GB-PFIZER INC-2009183333

PATIENT

DRUGS (2)
  1. LYRICA [Suspect]
     Indication: PAIN IN EXTREMITY
     Dosage: 75 MG, 2X/DAY
     Route: 048
     Dates: end: 20090311
  2. LYRICA [Suspect]
     Indication: DIABETIC NEUROPATHY

REACTIONS (2)
  - CHILLBLAINS [None]
  - POOR PERIPHERAL CIRCULATION [None]
